FAERS Safety Report 7408038-7 (Version None)
Quarter: 2011Q2

REPORT INFORMATION
  Report Type: 
  Country: None (occurrence: None)
  Receive Date: 20110412
  Receipt Date: 20110329
  Transmission Date: 20111010
  Serious: Yes (Hospitalization)
  Sender: FDA-Public Use
  Company Number: CA-JNJFOC-20110312648

PATIENT
  Sex: Female
  Weight: 65.9 kg

DRUGS (14)
  1. HALOPERIDOL [Concomitant]
     Route: 065
  2. PANTOLOC [Concomitant]
     Route: 065
  3. REMICADE [Suspect]
     Indication: CROHN'S DISEASE
     Route: 042
  4. NYSTATIN [Concomitant]
     Route: 065
  5. ATIVAN [Concomitant]
     Route: 065
  6. CYMBALTA [Concomitant]
     Route: 065
  7. PREDNISONE [Concomitant]
     Route: 048
  8. NEURONTIN [Concomitant]
     Route: 065
  9. LOPERAMIDE [Concomitant]
     Route: 065
  10. BACLOFEN [Concomitant]
     Route: 065
  11. DILAUDID [Concomitant]
     Route: 065
  12. INDOMETHACIN SODIUM [Concomitant]
     Route: 065
  13. METOPROLOL TARTRATE [Concomitant]
     Route: 065
  14. COLCHICINE [Concomitant]
     Route: 065

REACTIONS (1)
  - ILEOSTOMY [None]
